FAERS Safety Report 9036406 (Version 1)
Quarter: 2013Q1

REPORT INFORMATION
  Report Type: Spontaneous
  Country: US (occurrence: None)
  Receive Date: 20130117
  Receipt Date: 20130117
  Transmission Date: 20140127
  Serious: Yes (Hospitalization)
  Sender: FDA-Public Use
  Company Number: None

PATIENT
  Age: 87 Year
  Sex: Male
  Weight: 64.6 kg

DRUGS (15)
  1. OFATUMUMAB [Suspect]
     Dosage: 1000 MG, Q56DAYS, IV
     Route: 042
     Dates: start: 20120409, end: 20130107
  2. ALEMTUZUMAB [Suspect]
     Dosage: 30 MG, Q14DAYS, SC
     Route: 058
     Dates: start: 20120918, end: 20130107
  3. DORZOLAMIDE 2% [Concomitant]
  4. ECOTRIN [Concomitant]
  5. ENABLEX [Concomitant]
  6. FLONASE [Concomitant]
  7. LEVAQUIN [Concomitant]
  8. LUMIGAN [Concomitant]
  9. MEPRON [Concomitant]
  10. MVI [Concomitant]
  11. OMEPRAZOLE [Concomitant]
  12. SUDAFED [Concomitant]
  13. TAMIFLU [Concomitant]
  14. VALGANCICLOVIR [Concomitant]
  15. VITAMIN D3 [Concomitant]

REACTIONS (2)
  - Febrile neutropenia [None]
  - Respiratory tract infection fungal [None]
